FAERS Safety Report 8341872 (Version 3)
Quarter: 2012Q4

REPORT INFORMATION
  Report Type: 
  Country: JP (occurrence: JP)
  Receive Date: 20120118
  Receipt Date: 20121001
  Transmission Date: 20130627
  Serious: Yes (Hospitalization)
  Sender: FDA-Public Use
  Company Number: JP-ROCHE-1031162

PATIENT
  Age: 57 Year
  Sex: Female
  Weight: 40 kg

DRUGS (6)
  1. AVASTIN [Suspect]
     Indication: RECTAL CANCER RECURRENT
     Dosage: Treatment line: 1 primary Completed treatment cycle number: 1
     Route: 041
     Dates: start: 20111202, end: 20111202
  2. AVASTIN [Suspect]
     Indication: RECTAL CANCER METASTATIC
  3. XELODA [Suspect]
     Indication: RECTAL CANCER RECURRENT
     Route: 048
     Dates: start: 20111202, end: 20111206
  4. XELODA [Suspect]
     Indication: RECTAL CANCER METASTATIC
  5. BLOPRESS [Concomitant]
     Indication: HYPERTENSION
     Route: 048
     Dates: start: 20111202, end: 20111206
  6. AMLODIN [Concomitant]
     Dosage: Dosage is uncertain.
     Route: 048

REACTIONS (2)
  - Small intestinal perforation [Recovered/Resolved]
  - Constipation [Unknown]
